FAERS Safety Report 12744503 (Version 1)
Quarter: 2016Q3

REPORT INFORMATION
  Report Type: Spontaneous
  Country: US (occurrence: US)
  Receive Date: 20160914
  Receipt Date: 20160914
  Transmission Date: 20161109
  Serious: No
  Sender: FDA-Public Use
  Company Number: US-JAZZ-2016-US-009387

PATIENT
  Sex: Male

DRUGS (21)
  1. XYREM [Suspect]
     Active Substance: SODIUM OXYBATE
     Dosage: 4.5 G, BID
     Route: 048
     Dates: start: 201304
  2. INDOMETHACIN. [Concomitant]
     Active Substance: INDOMETHACIN
  3. LORATADINE. [Concomitant]
     Active Substance: LORATADINE
  4. XYREM [Suspect]
     Active Substance: SODIUM OXYBATE
     Indication: NARCOLEPSY
     Dosage: 2.25 G, BID
     Route: 048
     Dates: start: 201211, end: 201304
  5. ALLOPURINOL. [Concomitant]
     Active Substance: ALLOPURINOL
  6. SYNTHROID [Concomitant]
     Active Substance: LEVOTHYROXINE SODIUM
  7. ATENOLOL. [Concomitant]
     Active Substance: ATENOLOL
  8. COLCHICINE. [Concomitant]
     Active Substance: COLCHICINE
  9. ANDROGEL [Concomitant]
     Active Substance: TESTOSTERONE
  10. ASPIRIN. [Concomitant]
     Active Substance: ASPIRIN
  11. LOVASTATIN. [Concomitant]
     Active Substance: LOVASTATIN
  12. MULTIVITAMIN [Concomitant]
     Active Substance: VITAMINS
  13. GABAPENTIN. [Concomitant]
     Active Substance: GABAPENTIN
  14. EYE DROPS [Concomitant]
     Active Substance: TETRAHYDROZOLINE HYDROCHLORIDE
  15. ANDRODERM [Concomitant]
     Active Substance: TESTOSTERONE
  16. VICODIN [Concomitant]
     Active Substance: ACETAMINOPHEN\HYDROCODONE BITARTRATE
  17. OMEPRAZOLE. [Concomitant]
     Active Substance: OMEPRAZOLE
  18. GOLYTELY [Concomitant]
     Active Substance: POLYETHYLENE GLYCOL 3350\POTASSIUM CHLORIDE\SODIUM BICARBONATE\SODIUM CHLORIDE\SODIUM SULFATE ANHYDROUS
  19. LISINOPRIL. [Concomitant]
     Active Substance: LISINOPRIL
  20. OXYCODONE HYDROCHLORIDE. [Concomitant]
     Active Substance: OXYCODONE HYDROCHLORIDE
  21. TRAZODONE HYDROCHLORIDE. [Concomitant]
     Active Substance: TRAZODONE HYDROCHLORIDE

REACTIONS (1)
  - Fibromyalgia [Not Recovered/Not Resolved]
